FAERS Safety Report 10708697 (Version 2)
Quarter: 2015Q1

REPORT INFORMATION
  Report Type: Spontaneous
  Country: CH (occurrence: CH)
  Receive Date: 20150113
  Receipt Date: 20150128
  Transmission Date: 20150721
  Serious: Yes (Other)
  Sender: FDA-Public Use
  Company Number: CH-BAUSCH-BL-2015-000697

PATIENT
  Age: 5 Month
  Sex: Male

DRUGS (6)
  1. DEXAMETHASONE. [Suspect]
     Active Substance: DEXAMETHASONE
  2. DEXAMETHASONE. [Suspect]
     Active Substance: DEXAMETHASONE
  3. DEXAMETHASONE. [Suspect]
     Active Substance: DEXAMETHASONE
     Indication: PROPHYLAXIS
  4. DEXAMETHASONE. [Suspect]
     Active Substance: DEXAMETHASONE
  5. DEXAMETHASONE. [Suspect]
     Active Substance: DEXAMETHASONE
  6. DEXAMETHASONE. [Suspect]
     Active Substance: DEXAMETHASONE

REACTIONS (1)
  - Cushing^s syndrome [Recovered/Resolved]
